FAERS Safety Report 11308194 (Version 2)
Quarter: 2015Q4

REPORT INFORMATION
  Report Type: Spontaneous
  Country: US (occurrence: US)
  Receive Date: 20150724
  Receipt Date: 20151016
  Transmission Date: 20160304
  Serious: Yes (Hospitalization)
  Sender: FDA-Public Use
  Company Number: US-ROCHE-1612573

PATIENT
  Age: 53 Year
  Sex: Female
  Weight: 129.39 kg

DRUGS (36)
  1. TUDORZA PRESSAIR [Concomitant]
     Active Substance: ACLIDINIUM BROMIDE
     Route: 065
  2. OMEPRAZOLE. [Concomitant]
     Active Substance: OMEPRAZOLE
     Route: 065
  3. XANAX [Concomitant]
     Active Substance: ALPRAZOLAM
     Dosage: AS NEEDED.
     Route: 065
  4. LISINOPRIL. [Concomitant]
     Active Substance: LISINOPRIL
     Route: 065
  5. PROAIR HFA [Concomitant]
     Active Substance: ALBUTEROL SULFATE
     Dosage: 2 INHALATIONS EVERY 4-6 HOURS AS NEEDED AND FOR RESCUE
     Route: 065
  6. XYZAL [Concomitant]
     Active Substance: LEVOCETIRIZINE DIHYDROCHLORIDE
     Route: 065
  7. NEURONTIN [Concomitant]
     Active Substance: GABAPENTIN
     Dosage: 2 TABLETS 3 TIMES DAILY.
     Route: 065
  8. XOLAIR [Suspect]
     Active Substance: OMALIZUMAB
     Indication: ASTHMA
     Route: 058
     Dates: start: 20130325, end: 20150707
  9. NASAREL (UNITED STATES) [Concomitant]
     Dosage: 2 SPRAYS EACH NOSTRIL AT BEDTIME.
     Route: 065
  10. ASA [Concomitant]
     Active Substance: ASPIRIN
     Route: 065
  11. NASONEX [Concomitant]
     Active Substance: MOMETASONE FUROATE
     Dosage: 2 SPRAYS IN EACH NOSTRIL DAILY.
     Route: 065
  12. NORCO [Concomitant]
     Active Substance: ACETAMINOPHEN\HYDROCODONE BITARTRATE
     Dosage: 5/300 AS NEEDED.
     Route: 065
  13. TRAMADOL. [Concomitant]
     Active Substance: TRAMADOL
     Dosage: 1 OR 2 TABLETS DAILY
     Route: 065
  14. BUDESONIDE. [Concomitant]
     Active Substance: BUDESONIDE
     Dosage: 0.5MG/2M1- 1 AMPULE TWICE DAILY VIA NEBULIZER. RINSE MOUTH THOROUGHLYAFTER USE.
     Route: 065
  15. NORCO [Concomitant]
     Active Substance: ACETAMINOPHEN\HYDROCODONE BITARTRATE
     Dosage: 5/300 AS NEEDED
     Route: 065
  16. LANTUS [Concomitant]
     Active Substance: INSULIN GLARGINE
  17. MUCINEX DM [Concomitant]
     Active Substance: DEXTROMETHORPHAN HYDROBROMIDE\GUAIFENESIN
     Dosage: 1200/60- 1 TABLET TWICE DAILY.
     Route: 065
  18. SYNTHROID [Concomitant]
     Active Substance: LEVOTHYROXINE SODIUM
     Route: 065
  19. NEURONTIN [Concomitant]
     Active Substance: GABAPENTIN
     Route: 065
  20. VENTOLIN HFA [Concomitant]
     Active Substance: ALBUTEROL SULFATE
     Dosage: MDI- 2 INHALATIONS EVERY 4-6 HOURS AS NEEDED AND FOR RESCUE
     Route: 065
  21. ASMANEX [Concomitant]
     Active Substance: MOMETASONE FUROATE
     Route: 065
  22. ACCOLATE [Concomitant]
     Active Substance: ZAFIRLUKAST
     Route: 065
  23. SIMVASTATIN. [Concomitant]
     Active Substance: SIMVASTATIN
     Route: 065
  24. GLUCOPHAGE [Concomitant]
     Active Substance: METFORMIN HYDROCHLORIDE
     Route: 065
  25. NASAREL (UNITED STATES) [Concomitant]
     Dosage: 2 SPRAYS EACH NOSTRIL AT BEDTIME.
     Route: 065
  26. VICODIN [Concomitant]
     Active Substance: ACETAMINOPHEN\HYDROCODONE BITARTRATE
     Dosage: I TABLET EVERY 6 HOURS AS NEEDED
     Route: 065
  27. CINNAMON. [Concomitant]
     Active Substance: CINNAMON
     Route: 065
  28. EPIPEN [Concomitant]
     Active Substance: EPINEPHRINE
     Route: 065
  29. ALBUTEROL. [Concomitant]
     Active Substance: ALBUTEROL
     Dosage: SOLUTION FOR INHALATION- 1 AMPULE VIA NEBULIZER EVERY 4-6 HOURS ASNEEDED AND FOR RESCUE.
     Route: 065
  30. ALLEGRA [Concomitant]
     Active Substance: FEXOFENADINE HYDROCHLORIDE
     Route: 065
  31. CELEBREX [Concomitant]
     Active Substance: CELECOXIB
     Route: 065
  32. AMBIEN [Concomitant]
     Active Substance: ZOLPIDEM TARTRATE
     Dosage: 1 TABLET AT BEDTIME AS NEEDED.
     Route: 065
  33. SYMBICORT [Concomitant]
     Active Substance: BUDESONIDE\FORMOTEROL FUMARATE DIHYDRATE
     Dosage: 160/4.5- 2 INHALATIONS TWICE DAILY.
     Route: 065
  34. FLAXSEED [Concomitant]
     Active Substance: FLAX SEED
     Route: 065
  35. MUCINEX [Concomitant]
     Active Substance: GUAIFENESIN
     Route: 065
  36. HUMULIN NOS [Concomitant]
     Active Substance: INSULIN HUMAN

REACTIONS (1)
  - Pneumonia [Recovered/Resolved]

NARRATIVE: CASE EVENT DATE: 20140627
